FAERS Safety Report 26077082 (Version 1)
Quarter: 2025Q4

REPORT INFORMATION
  Report Type: Spontaneous
  Country: US (occurrence: US)
  Receive Date: 20251121
  Receipt Date: 20251121
  Transmission Date: 20260118
  Serious: Yes (Hospitalization, Other)
  Sender: B. BRAUN MEDICAL INC.
  Company Number: US-B. Braun Medical Inc.-US-BBM-202504454

PATIENT
  Age: 36 Year
  Sex: Female

DRUGS (3)
  1. ACETIC ACID [Suspect]
     Active Substance: ACETIC ACID
  2. HYDROGEN PEROXIDE [Suspect]
     Active Substance: HYDROGEN PEROXIDE
  3. PERACETIC ACID [Suspect]
     Active Substance: PERACETIC ACID

REACTIONS (1)
  - Laryngeal dyskinesia [Unknown]
